FAERS Safety Report 7118197-1 (Version None)
Quarter: 2010Q4

REPORT INFORMATION
  Report Type: 
  Country: None (occurrence: None)
  Receive Date: 20101123
  Receipt Date: 20100324
  Transmission Date: 20110411
  Serious: No
  Sender: FDA-Public Use
  Company Number: US-MYLANLABS-2010S1003035

PATIENT
  Age: 71 Year
  Sex: Female
  Weight: 92.99 kg

DRUGS (6)
  1. DOXAZOSIN TABLETS [Suspect]
     Indication: BLOOD PRESSURE
     Route: 048
     Dates: start: 20100218, end: 20100222
  2. MICARDIS [Concomitant]
     Indication: BLOOD PRESSURE INCREASED
     Route: 048
  3. TRIAMTERENE AND HYDROCHLOROTHIAZIDE [Concomitant]
     Route: 048
  4. NEXIUM [Concomitant]
     Indication: GASTROOESOPHAGEAL REFLUX DISEASE
     Route: 048
  5. LORCET-HD [Concomitant]
     Indication: PAIN
     Route: 048
  6. DIAZEPAM [Concomitant]
     Indication: ANXIETY
     Dosage: AND PRN
     Route: 048

REACTIONS (8)
  - BLOOD PRESSURE INCREASED [None]
  - CHEST DISCOMFORT [None]
  - DRUG INEFFECTIVE [None]
  - DYSPNOEA [None]
  - HEADACHE [None]
  - HEART RATE INCREASED [None]
  - MIDDLE INSOMNIA [None]
  - OROPHARYNGEAL PAIN [None]
